FAERS Safety Report 9377310 (Version 2)
Quarter: 2013Q3

REPORT INFORMATION
  Report Type: Report from Study
  Country: DE (occurrence: DE)
  Receive Date: 20130701
  Receipt Date: 20130726
  Transmission Date: 20140515
  Serious: Yes (Life-Threatening, Hospitalization)
  Sender: FDA-Public Use
  Company Number: DE-BIOGENIDEC-2013BI057120

PATIENT
  Age: 40 Year
  Sex: Male
  Weight: 65 kg

DRUGS (4)
  1. TYSABRI [Suspect]
     Indication: MULTIPLE SCLEROSIS
     Route: 042
     Dates: start: 20080625, end: 20130205
  2. FAMPYRIA [Concomitant]
     Indication: MULTIPLE SCLEROSIS
     Route: 048
     Dates: start: 20120320
  3. DETRUSITOL [Concomitant]
     Indication: MULTIPLE SCLEROSIS
     Route: 048
  4. COPAXONE [Concomitant]
     Indication: MULTIPLE SCLEROSIS
     Route: 058
     Dates: start: 20130205

REACTIONS (1)
  - Multiple sclerosis relapse [Not Recovered/Not Resolved]
